FAERS Safety Report 20056358 (Version 3)
Quarter: 2022Q3

REPORT INFORMATION
  Report Type: Spontaneous
  Country: ES (occurrence: ES)
  Receive Date: 20211111
  Receipt Date: 20220921
  Transmission Date: 20221027
  Serious: Yes (Hospitalization)
  Sender: FDA-Public Use
  Company Number: ES-SA-SAC20211019000875

PATIENT

DRUGS (20)
  1. GOSERELIN [Suspect]
     Active Substance: GOSERELIN
     Indication: Invasive ductal breast carcinoma
     Dosage: 3.6 MG; ONCE EVERY 28 DAYS
     Route: 058
  2. ZOLADEX [Suspect]
     Active Substance: GOSERELIN ACETATE
     Indication: Invasive ductal breast carcinoma
     Dosage: UNK
     Route: 065
  3. PALBOCICLIB [Suspect]
     Active Substance: PALBOCICLIB
     Indication: Invasive ductal breast carcinoma
     Dosage: 125 MG, QD
     Route: 048
     Dates: start: 20211001
  4. PALBOCICLIB [Suspect]
     Active Substance: PALBOCICLIB
     Dosage: 125 MG, QD
     Route: 048
     Dates: start: 20210705
  5. AMCENESTRANT [Suspect]
     Active Substance: AMCENESTRANT
     Indication: Invasive ductal breast carcinoma
     Dosage: 2.5 MG, QD
     Route: 048
     Dates: start: 20210705
  6. AMCENESTRANT [Suspect]
     Active Substance: AMCENESTRANT
     Dosage: 200 MG, QD
     Route: 048
     Dates: start: 20211001
  7. AMCENESTRANT [Suspect]
     Active Substance: AMCENESTRANT
     Dosage: 200 MG, QD
     Route: 048
     Dates: start: 20210705, end: 20210705
  8. AMCENESTRANT [Suspect]
     Active Substance: AMCENESTRANT
     Dosage: 2.5 MG, QD
     Route: 048
     Dates: start: 20211001
  9. LETROZOLE [Suspect]
     Active Substance: LETROZOLE
     Indication: Invasive ductal breast carcinoma
     Dosage: 2.5 MG, QD
     Route: 048
     Dates: start: 20210705
  10. LETROZOLE [Suspect]
     Active Substance: LETROZOLE
     Dosage: 2.5 MG, QD
     Route: 048
     Dates: start: 20211001, end: 20211028
  11. PREGABALIN [Concomitant]
     Active Substance: PREGABALIN
     Indication: Prophylaxis
     Dosage: UNK
     Route: 065
     Dates: start: 20210714
  12. TIMOLOL [TIMOLOL MALEATE] [Concomitant]
     Indication: Prophylaxis
     Dosage: UNK
     Route: 047
     Dates: start: 20210420
  13. OMEPRAZOLE MAGNESIUM [Concomitant]
     Active Substance: OMEPRAZOLE MAGNESIUM
     Indication: Prophylaxis
     Dosage: UNK
     Route: 048
     Dates: start: 20200428
  14. ZOMETA [Concomitant]
     Active Substance: ZOLEDRONIC ACID
     Indication: Prophylaxis
     Dosage: UNK
     Route: 042
     Dates: start: 20110615
  15. DULOXETINE HYDROCHLORIDE [Concomitant]
     Active Substance: DULOXETINE HYDROCHLORIDE
     Indication: Prophylaxis
     Dosage: UNK
     Route: 048
     Dates: start: 20210223
  16. NAPROXEN [Concomitant]
     Active Substance: NAPROXEN
     Indication: Prophylaxis
     Dosage: UNK
     Route: 048
     Dates: start: 20200520
  17. BIMATOPROST [Concomitant]
     Active Substance: BIMATOPROST
     Indication: Prophylaxis
     Dosage: UNK
     Route: 047
     Dates: start: 20210420
  18. CALCIUM CARBONATE\CHOLECALCIFEROL [Concomitant]
     Active Substance: CALCIUM CARBONATE\CHOLECALCIFEROL
     Indication: Prophylaxis
     Dosage: UNK
     Route: 048
     Dates: start: 20141125
  19. TAPENTADOL [Concomitant]
     Active Substance: TAPENTADOL
     Indication: Prophylaxis
     Dosage: UNK
     Route: 048
     Dates: start: 20210503
  20. DEXAMETHASONE [Concomitant]
     Active Substance: DEXAMETHASONE
     Indication: Prophylaxis
     Dosage: UNK
     Route: 048
     Dates: start: 20210628

REACTIONS (1)
  - Pneumonitis [Recovered/Resolved]

NARRATIVE: CASE EVENT DATE: 20211015
